FAERS Safety Report 8290107-3 (Version None)
Quarter: 2012Q2

REPORT INFORMATION
  Report Type: 
  Country: None (occurrence: None)
  Receive Date: 20120417
  Receipt Date: 20120410
  Transmission Date: 20120825
  Serious: Yes (Hospitalization)
  Sender: FDA-Public Use
  Company Number: PHHY2012AR031104

PATIENT
  Sex: Male

DRUGS (2)
  1. DIOVAN HCT [Suspect]
     Indication: FLUID RETENTION
  2. DIOVAN HCT [Suspect]
     Indication: HYPERTENSION
     Dosage: (80/12.5 MG), DAILY

REACTIONS (1)
  - CORONARY ARTERY OCCLUSION [None]
